FAERS Safety Report 22159867 (Version 4)
Quarter: 2025Q1

REPORT INFORMATION
  Report Type: Spontaneous
  Country: US (occurrence: US)
  Receive Date: 20230331
  Receipt Date: 20250327
  Transmission Date: 20250408
  Serious: Yes (Other)
  Sender: TAKEDA
  Company Number: US-TAKEDA-2023TUS031485

PATIENT
  Sex: Male

DRUGS (1)
  1. ALUNBRIG [Suspect]
     Active Substance: BRIGATINIB
     Indication: Product used for unknown indication

REACTIONS (5)
  - Bradycardia [Unknown]
  - Food intolerance [Unknown]
  - Central nervous system lesion [Unknown]
  - Nausea [Unknown]
  - Abdominal discomfort [Unknown]
